FAERS Safety Report 8999236 (Version 1)
Quarter: 2013Q1

REPORT INFORMATION
  Report Type: Spontaneous
  Country: US (occurrence: US)
  Receive Date: 20130103
  Receipt Date: 20130103
  Transmission Date: 20140127
  Serious: Yes (Hospitalization, Other)
  Sender: FDA-Public Use
  Company Number: PHEH2012US025600

PATIENT
  Age: 67 Year
  Sex: Female
  Weight: 83.3 kg

DRUGS (11)
  1. TRILEPTAL [Suspect]
  2. EXELON PATCH [Suspect]
  3. PRAMIPEXOLE [Concomitant]
  4. MIRAPEX [Concomitant]
  5. LASIX [Concomitant]
  6. POTASSIUM [Concomitant]
  7. CITALOPRAM [Concomitant]
  8. TRAZODONE [Concomitant]
  9. CLONAZEPAM [Concomitant]
  10. FOLIC ACID [Concomitant]
  11. VIIBRYD [Concomitant]

REACTIONS (24)
  - Syncope [Unknown]
  - Cervical spinal stenosis [Unknown]
  - Exostosis [Unknown]
  - Convulsion [Unknown]
  - Seizure like phenomena [Unknown]
  - Reflexes abnormal [Unknown]
  - Tremor [Unknown]
  - Fall [Unknown]
  - Back pain [Unknown]
  - Depression [Unknown]
  - Musculoskeletal stiffness [Unknown]
  - Faeces pale [Unknown]
  - Joint swelling [Unknown]
  - Arthralgia [Unknown]
  - Action tremor [Unknown]
  - Hypoaesthesia [Unknown]
  - Fatigue [Unknown]
  - Muscle spasms [Unknown]
  - Anxiety [Unknown]
  - Urinary incontinence [Unknown]
  - Gait disturbance [Unknown]
  - Blood sodium decreased [Unknown]
  - Headache [Unknown]
  - Dizziness [Unknown]
